FAERS Safety Report 14613243 (Version 1)
Quarter: 2018Q1

REPORT INFORMATION
  Report Type: Spontaneous
  Country: US (occurrence: US)
  Receive Date: 20180308
  Receipt Date: 20180308
  Transmission Date: 20180509
  Serious: Yes (Hospitalization, Other)
  Sender: FDA-Public Use
  Company Number: US-OXFORD PHARMACEUTICALS, LLC-2018OXF00007

PATIENT
  Age: 28 Year
  Sex: Male

DRUGS (13)
  1. SERTRALINE HYDROCHLORIDE. [Suspect]
     Active Substance: SERTRALINE HYDROCHLORIDE
     Dosage: 200 MG, EVERY MORNING (AND ^SELF-TITRATED BASED ON HIS MOOD^)
     Route: 048
  2. CYCLOBENZAPRINE. [Suspect]
     Active Substance: CYCLOBENZAPRINE
     Route: 048
  3. DIVALPROEX ER [Concomitant]
     Active Substance: DIVALPROEX SODIUM
     Dosage: 1000 MG, 2X/DAY
     Route: 048
  4. BENZODIAZEPINES [Concomitant]
     Active Substance: BENZODIAZEPINE
     Route: 065
  5. SERTRALINE HYDROCHLORIDE. [Suspect]
     Active Substance: SERTRALINE HYDROCHLORIDE
     Dosage: 25 MG
     Route: 048
  6. BUPROPION. [Concomitant]
     Active Substance: BUPROPION
     Dosage: 100 MG, EVERY 12 HOURS
     Route: 048
  7. NATROL (OXITRIPTAN) [Suspect]
     Active Substance: OXITRIPTAN
     Route: 065
  8. BUPROPION XL [Concomitant]
     Active Substance: BUPROPION
     Dosage: 150 MG, 1X/DAY
     Route: 048
  9. SILDENAFIL. [Concomitant]
     Active Substance: SILDENAFIL
     Dosage: 100 MG, AS NEEDED
     Route: 048
  10. OPIOIDS [Concomitant]
     Active Substance: UNSPECIFIED INGREDIENT
     Route: 065
  11. PRAZOSIN. [Concomitant]
     Active Substance: PRAZOSIN
     Dosage: 6 MG, AT BEDTIME
     Route: 048
  12. HYDROXYZINE HCL [Concomitant]
     Active Substance: HYDROXYZINE HYDROCHLORIDE
     Dosage: 50 MG, AT BEDTIME
     Route: 048
  13. 23 DIETARY SUPPLEMENTS [Concomitant]
     Route: 065

REACTIONS (6)
  - Rhabdomyolysis [Recovering/Resolving]
  - Drug interaction [Unknown]
  - Hypoxia [Recovering/Resolving]
  - Serotonin syndrome [Recovering/Resolving]
  - Compartment syndrome [Recovering/Resolving]
  - Seizure [Recovered/Resolved]
